FAERS Safety Report 9998254 (Version 2)
Quarter: 2014Q1

REPORT INFORMATION
  Report Type: Spontaneous
  Country: US (occurrence: US)
  Receive Date: 20140311
  Receipt Date: 20140311
  Transmission Date: 20141002
  Serious: Yes (Other)
  Sender: FDA-Public Use
  Company Number: US-GE HEALTHCARE MEDICAL DIAGNOSTICS-OSCN-PR-0902S-0065

PATIENT
  Sex: Male

DRUGS (38)
  1. OMNISCAN [Suspect]
     Indication: HYPERTENSION
     Route: 042
     Dates: start: 19991217, end: 19991217
  2. OMNISCAN [Suspect]
     Indication: VISION BLURRED
     Route: 042
     Dates: start: 20030905, end: 20030905
  3. OMNISCAN [Suspect]
     Indication: CEREBROVASCULAR ACCIDENT
     Route: 042
     Dates: start: 20051117, end: 20051117
  4. OMNISCAN [Suspect]
     Indication: COGNITIVE DISORDER
  5. MAGNEVIST [Suspect]
     Indication: DIZZINESS
     Dates: start: 20060810, end: 20060810
  6. MAGNEVIST [Suspect]
     Indication: HEADACHE
     Dates: start: 20080326, end: 20080326
  7. MAGNEVIST [Suspect]
     Indication: VISION BLURRED
     Dates: start: 19960712, end: 19960712
  8. MAGNEVIST [Suspect]
     Indication: NAUSEA
  9. MAGNEVIST [Suspect]
     Indication: INTERVERTEBRAL DISC DISORDER
  10. ACCUPRIL [Concomitant]
  11. SKELAXIN [Concomitant]
  12. FURSOSEMIDE [Concomitant]
  13. DESYREL [Concomitant]
  14. HYTRIN [Concomitant]
  15. XANAX [Concomitant]
  16. HYDROCHLOROTHIAZIDE [Concomitant]
  17. VIOXX [Concomitant]
  18. TARKA [Concomitant]
  19. CORGARD [Concomitant]
  20. BUTALBITAL [Concomitant]
  21. METFORMIN [Concomitant]
  22. PLAVIX [Concomitant]
  23. ACTOS [Concomitant]
  24. METOPROLOL [Concomitant]
  25. DIOVAN [Concomitant]
  26. SERZONE [Concomitant]
  27. CRESTOR [Concomitant]
  28. NIASPAN [Concomitant]
  29. EFFEXOR XR [Concomitant]
  30. GLIMEPIRIDE [Concomitant]
  31. VYTORIN [Concomitant]
  32. ECOTRIN [Concomitant]
  33. BYETTA [Concomitant]
  34. MECLIZINE [Concomitant]
  35. ENALAPRIL [Concomitant]
  36. FLOMAX [Concomitant]
  37. LANTUS [Concomitant]
  38. ZOLPIDEM [Concomitant]

REACTIONS (1)
  - Nephrogenic systemic fibrosis [Not Recovered/Not Resolved]
